FAERS Safety Report 6453394-X (Version None)
Quarter: 2009Q4

REPORT INFORMATION
  Report Type: 
  Country: None (occurrence: None)
  Receive Date: 20091124
  Receipt Date: 20091110
  Transmission Date: 20100525
  Serious: Yes (Disabling)
  Sender: FDA-Public Use
  Company Number: GB-ROCHE-668438

PATIENT
  Sex: Female
  Weight: 68 kg

DRUGS (2)
  1. COPEGUS [Suspect]
     Indication: DRUG USE FOR UNKNOWN INDICATION
     Route: 048
     Dates: start: 20090722, end: 20090918
  2. PEGYLATED INTERFERON NOS [Suspect]
     Indication: HEPATITIS C
     Route: 058
     Dates: start: 20090722, end: 20090918

REACTIONS (3)
  - BLISTER [None]
  - OEDEMA PERIPHERAL [None]
  - RASH GENERALISED [None]
